FAERS Safety Report 6432678-5 (Version None)
Quarter: 2009Q4

REPORT INFORMATION
  Report Type: 
  Country: None (occurrence: None)
  Receive Date: 20091109
  Receipt Date: 20091030
  Transmission Date: 20100525
  Serious: Yes (Hospitalization)
  Sender: FDA-Public Use
  Company Number: GXKR2009HK11990

PATIENT
  Age: 44 Year
  Sex: Female

DRUGS (3)
  1. THIAMAZOLE (NGX) [Suspect]
     Indication: HYPERTHYROIDISM
     Dosage: 15 MG, UNK
     Route: 065
  2. RADIOACTIVE IODINE TREATMENT [Concomitant]
     Route: 065
  3. LEVOTHYROXINE SODIUM [Concomitant]
     Indication: HYPOTHYROIDISM
     Route: 065

REACTIONS (8)
  - ANTI-NEUTROPHIL CYTOPLASMIC ANTIBODY POSITIVE VASCULITIS [None]
  - ARTHRALGIA [None]
  - DYSPNOEA [None]
  - EXOPHTHALMOS [None]
  - GLOMERULONEPHRITIS [None]
  - HAEMATURIA [None]
  - HAEMOPTYSIS [None]
  - PULMONARY ALVEOLAR HAEMORRHAGE [None]
